FAERS Safety Report 7481619-0 (Version None)
Quarter: 2011Q2

REPORT INFORMATION
  Report Type: 
  Country: None (occurrence: None)
  Receive Date: 20110516
  Receipt Date: 20110427
  Transmission Date: 20111010
  Serious: No
  Sender: FDA-Public Use
  Company Number: US-B.I. PHARMACEUTICALS,INC./RIDGEFIELD-2011-BP-03141BP

PATIENT
  Sex: Female

DRUGS (7)
  1. POTASSIUM [Concomitant]
  2. CARVEDILOL [Concomitant]
     Indication: BLOOD PRESSURE
     Dosage: 6.25 MG
  3. FUROSEMIDE [Concomitant]
     Indication: FLUID RETENTION
     Dosage: 20 MG
  4. DIURETIC [Concomitant]
  5. PACERONE [Concomitant]
     Dosage: 200 MG
  6. KLOR-CON [Concomitant]
     Indication: BLOOD POTASSIUM
     Dosage: 10 MEQ
  7. PRADAXA [Suspect]
     Indication: ATRIAL FIBRILLATION

REACTIONS (2)
  - OEDEMA PERIPHERAL [None]
  - HEADACHE [None]
